FAERS Safety Report 11930444 (Version 1)
Quarter: 2016Q1

REPORT INFORMATION
  Report Type: Spontaneous
  Country: US (occurrence: None)
  Receive Date: 20160120
  Receipt Date: 20160120
  Transmission Date: 20160526
  Serious: No
  Sender: FDA-Public Use
  Company Number: None

PATIENT
  Age: 59 Year
  Sex: Male

DRUGS (10)
  1. DANAZOL. [Concomitant]
     Active Substance: DANAZOL
  2. METOPROLOL. [Concomitant]
     Active Substance: METOPROLOL
  3. FLUCONAZOLE. [Concomitant]
     Active Substance: FLUCONAZOLE
  4. LEVOFLOXACIN. [Concomitant]
     Active Substance: LEVOFLOXACIN
  5. NYSTATIN. [Concomitant]
     Active Substance: NYSTATIN
  6. EXJADE [Suspect]
     Active Substance: DEFERASIROX
     Indication: HAEMOCHROMATOSIS
     Route: 048
     Dates: start: 20151013
  7. ONDANSETRON [Concomitant]
     Active Substance: ONDANSETRON
  8. EXJADE [Suspect]
     Active Substance: DEFERASIROX
     Indication: TRANSFUSION
     Route: 048
     Dates: start: 20151013
  9. CEPHALEXIN. [Concomitant]
     Active Substance: CEPHALEXIN
  10. PREDNISONE. [Concomitant]
     Active Substance: PREDNISONE

REACTIONS (2)
  - Incorrect dose administered [None]
  - Intentional product use issue [None]

NARRATIVE: CASE EVENT DATE: 20160113
